FAERS Safety Report 4482047-2 (Version None)
Quarter: 2004Q4

REPORT INFORMATION
  Report Type: 
  Country: None (occurrence: None)
  Receive Date: 20041020
  Receipt Date: 20040929
  Transmission Date: 20050328
  Serious: Yes (Death)
  Sender: FDA-Public Use
  Company Number: FR_041004906

PATIENT
  Age: 39 Year
  Sex: Male

DRUGS (3)
  1. ZYPREXA [Suspect]
     Indication: SCHIZOPHRENIA
     Dosage: 30 MG DAY
     Dates: start: 20040926
  2. TERCIAN (CYAMEMAZINE) [Concomitant]
  3. HALDOL DECANOATE (HALOPERIDOL DECANOATE) [Concomitant]

REACTIONS (1)
  - SUICIDAL IDEATION [None]
